FAERS Safety Report 9298157 (Version 3)
Quarter: 2014Q1

REPORT INFORMATION
  Report Type: Spontaneous
  Country: US (occurrence: None)
  Receive Date: 20130515
  Receipt Date: 20140103
  Transmission Date: 20141002
  Serious: Yes (Hospitalization)
  Sender: FDA-Public Use
  Company Number: JPI-P-031709

PATIENT
  Age: 32 Year
  Sex: Female
  Weight: 56.7 kg

DRUGS (3)
  1. XYREM (SODIUM OXYBATE) ORAL SOLUTION, 500MG/ML [Suspect]
     Indication: SLEEP DISORDER
     Dosage: (UNKNOWN ORAL)
     Route: 048
     Dates: start: 20050215
  2. DULOXETINE HYDROCHLORIDE [Concomitant]
  3. CYTOMEL (LIOTHYRONINE SODIUM) [Concomitant]

REACTIONS (17)
  - Abdominal operation [None]
  - Abdominal hernia [None]
  - Abdominal pain [None]
  - Intestinal mass [None]
  - Appendix disorder [None]
  - Endometriosis [None]
  - Mass [None]
  - Gastrointestinal carcinoma [None]
  - Hernia repair [None]
  - Ovarian cyst [None]
  - Urinary tract infection [None]
  - Cystitis interstitial [None]
  - Abdominal pain lower [None]
  - Urinary tract infection [None]
  - Appendicectomy [None]
  - Endometriosis ablation [None]
  - Ovarian cystectomy [None]
